FAERS Safety Report 7331226-5 (Version None)
Quarter: 2011Q1

REPORT INFORMATION
  Report Type: 
  Country: None (occurrence: None)
  Receive Date: 20110302
  Receipt Date: 20110302
  Transmission Date: 20110831
  Serious: No
  Sender: FDA-Public Use
  Company Number: None

PATIENT
  Age: 62 Year
  Sex: Female
  Weight: 102.0593 kg

DRUGS (2)
  1. ALCOHOL PREP USED PRIOR TO DAILY COPAXONE INJECTION [Suspect]
     Indication: RELAPSING-REMITTING MULTIPLE SCLEROSIS
     Dosage: SKIN SWAB 1 X DAILY (EPIDERMIS AND DERMIS)
     Dates: start: 20110101, end: 20110218
  2. ALCOHOL PREP USED PRIOR TO DAILY COPAXONE INJECTION [Suspect]

REACTIONS (3)
  - ABDOMINAL DISCOMFORT [None]
  - DIARRHOEA [None]
  - GASTROINTESTINAL DISORDER [None]
